FAERS Safety Report 6912110-5 (Version None)
Quarter: 2010Q3

REPORT INFORMATION
  Report Type: 
  Country: None (occurrence: None)
  Receive Date: 20100806
  Receipt Date: 20080108
  Transmission Date: 20110219
  Serious: No
  Sender: FDA-Public Use
  Company Number: US-PFIZER INC-2008003692

PATIENT
  Sex: Female
  Weight: 90.909 kg

DRUGS (5)
  1. DETROL LA [Suspect]
     Indication: HYPERTONIC BLADDER
     Dates: start: 20071201
  2. LITHIUM [Concomitant]
     Indication: BIPOLAR DISORDER
  3. WELLBUTRIN [Concomitant]
  4. LEVOTHROID [Concomitant]
  5. PREMARIN [Concomitant]

REACTIONS (3)
  - ABDOMINAL PAIN [None]
  - BACK PAIN [None]
  - POOR QUALITY SLEEP [None]
